FAERS Safety Report 5689528-4 (Version None)
Quarter: 2008Q1

REPORT INFORMATION
  Report Type: 
  Country: None (occurrence: None)
  Receive Date: 20080328
  Receipt Date: 20080319
  Transmission Date: 20080703
  Serious: Yes (Other)
  Sender: FDA-Public Use
  Company Number: 220043J08USA

PATIENT
  Age: 8 Year
  Sex: Male

DRUGS (1)
  1. SAIZEN [Suspect]
     Indication: OFF LABEL USE
     Dosage: 0.24 ML, 1 IN 1 DAYS, SUBCUTANEOUS
     Route: 058
     Dates: start: 20070411

REACTIONS (2)
  - CONDITION AGGRAVATED [None]
  - PETIT MAL EPILEPSY [None]
